FAERS Safety Report 4769017-1 (Version None)
Quarter: 2005Q3

REPORT INFORMATION
  Report Type: 
  Country: None (occurrence: None)
  Receive Date: 20050906
  Receipt Date: 20050510
  Transmission Date: 20060218
  Serious: No
  Sender: FDA-Public Use
  Company Number: 2005-BP-07016BP

PATIENT
  Age: 64 Year
  Sex: Female

DRUGS (11)
  1. SPIRIVA [Suspect]
     Indication: CHRONIC OBSTRUCTIVE PULMONARY DISEASE
     Dosage: 18 MCG (18 MCG,1 IN 1 D),IH
     Dates: start: 20050324
  2. SPIRIVA [Suspect]
     Indication: DYSPNOEA
     Dosage: 18 MCG (18 MCG,1 IN 1 D),IH
     Dates: start: 20050324
  3. TENORMIN [Concomitant]
  4. CARDIZEM CD [Concomitant]
  5. ZOCOR [Concomitant]
  6. MIACALCIN [Concomitant]
  7. EVISTA [Concomitant]
  8. ACETYLSALICYLIC ACID SRT [Concomitant]
  9. CENTRUM SILVER (CENTRUM SILVER) [Concomitant]
  10. CALCIUM (CALCIUM) [Concomitant]
  11. HYDROCHLOROTHIAZIDE [Concomitant]

REACTIONS (1)
  - BACK PAIN [None]
